FAERS Safety Report 9928406 (Version 2)
Quarter: 2014Q1

REPORT INFORMATION
  Report Type: Spontaneous
  Country: US (occurrence: US)
  Receive Date: 20140227
  Receipt Date: 20140318
  Transmission Date: 20141002
  Serious: No
  Sender: FDA-Public Use
  Company Number: US-PFIZER INC-2014053030

PATIENT
  Sex: Female

DRUGS (2)
  1. ALAVERT D-12 HOUR ALLERGY + SINUS [Suspect]
     Dosage: 1 DF, UNK
  2. ALAVERT D-12 HOUR ALLERGY + SINUS [Suspect]
     Dosage: 0.5 DF, UNK

REACTIONS (3)
  - Wrong technique in drug usage process [Unknown]
  - Insomnia [Unknown]
  - Therapeutic response unexpected [Unknown]
